FAERS Safety Report 15616797 (Version 4)
Quarter: 2019Q1

REPORT INFORMATION
  Report Type: Spontaneous
  Country: CA (occurrence: CA)
  Receive Date: 20181114
  Receipt Date: 20190307
  Transmission Date: 20190417
  Serious: Yes (Hospitalization, Other)
  Sender: FDA-Public Use
  Company Number: CA-CELLTRION INC.-2018CA020104

PATIENT

DRUGS (11)
  1. INFLECTRA [Suspect]
     Active Substance: INFLIXIMAB-DYYB
     Indication: ANKYLOSING SPONDYLITIS
     Dosage: 464 MG, 0,2, 6, THEN EVERY 8 WEEKS
     Route: 042
     Dates: start: 20171106, end: 20180208
  2. INFLECTRA [Suspect]
     Active Substance: INFLIXIMAB-DYYB
     Dosage: 500 MG (OR 5 VIALS), EVERY 6 WEEKS
     Route: 042
     Dates: start: 20180504
  3. INFLECTRA [Suspect]
     Active Substance: INFLIXIMAB-DYYB
     Dosage: UNK
     Route: 042
     Dates: start: 20180727
  4. REMICADE [Suspect]
     Active Substance: INFLIXIMAB
     Indication: ANKYLOSING SPONDYLITIS
     Dosage: 500 MG (OR 5 VIALS), EVERY 6 WEEKS OR EVERY 8 WEEKS
     Route: 065
  5. INFLECTRA [Suspect]
     Active Substance: INFLIXIMAB-DYYB
     Dosage: 480 MG (OR 5 VIALS), EVERY 6 WEEKS
     Route: 042
     Dates: start: 20180323
  6. INFLECTRA [Suspect]
     Active Substance: INFLIXIMAB-DYYB
     Dosage: 500 MG (OR 5 VIALS), EVERY 6 WEEKS
     Route: 042
     Dates: start: 20181017
  7. INFLECTRA [Suspect]
     Active Substance: INFLIXIMAB-DYYB
     Dosage: 500 MG (OR 5 VIALS), EVERY 6 WEEKS
     Route: 042
     Dates: start: 20181129
  8. PANTOLOC [PANTOPRAZOLE] [Concomitant]
     Active Substance: PANTOPRAZOLE SODIUM
     Dosage: 40 MG ONCE DAILY
  9. INFLECTRA [Suspect]
     Active Substance: INFLIXIMAB-DYYB
     Dosage: 480 MG (OR 5 VIALS), EVERY 6 WEEKS
     Route: 042
     Dates: start: 20180323, end: 20180323
  10. INFLECTRA [Suspect]
     Active Substance: INFLIXIMAB-DYYB
     Dosage: 500 MG (OR 5 VIALS), EVERY 6 WEEKS
     Route: 042
     Dates: start: 20180614
  11. INFLECTRA [Suspect]
     Active Substance: INFLIXIMAB-DYYB
     Dosage: UNK
     Route: 042
     Dates: start: 20180907

REACTIONS (6)
  - Malaise [Unknown]
  - Product use issue [Unknown]
  - Cholelithiasis [Recovering/Resolving]
  - Refraction disorder [Unknown]
  - Blood pressure fluctuation [Unknown]
  - Heart rate irregular [Unknown]

NARRATIVE: CASE EVENT DATE: 20180504
